FAERS Safety Report 11746457 (Version 1)
Quarter: 2015Q4

REPORT INFORMATION
  Report Type: Spontaneous
  Country: US (occurrence: US)
  Receive Date: 20151117
  Receipt Date: 20151117
  Transmission Date: 20160304
  Serious: Yes (Other)
  Sender: FDA-Public Use
  Company Number: US-MYLANLABS-2015M1039474

PATIENT

DRUGS (2)
  1. TOPOTECAN [Concomitant]
     Active Substance: TOPOTECAN\TOPOTECAN HYDROCHLORIDE
     Indication: CERVIX CARCINOMA RECURRENT
     Dosage: 0.75 MG/M2 DAILY ON CYCLE DAYS 1, 2 AND 3 EVERY 3 WEEKS
     Route: 065
     Dates: start: 201310
  2. CISPLATIN. [Suspect]
     Active Substance: CISPLATIN
     Indication: CERVIX CARCINOMA RECURRENT
     Dosage: 50 MG/M2 ON CYCLE DAY 1, EVERY THREE WEEKS
     Route: 065
     Dates: start: 201310, end: 201402

REACTIONS (1)
  - Status epilepticus [Recovered/Resolved]

NARRATIVE: CASE EVENT DATE: 201402
